FAERS Safety Report 4904516-0 (Version None)
Quarter: 2006Q1

REPORT INFORMATION
  Report Type: 
  Country: None (occurrence: None)
  Receive Date: 20060208
  Receipt Date: 20050913
  Transmission Date: 20060701
  Serious: No
  Sender: FDA-Public Use
  Company Number: US-GLAXOSMITHKLINE-A0574053A

PATIENT
  Age: 42 Year
  Sex: Female

DRUGS (4)
  1. PAXIL [Suspect]
     Indication: POST-TRAUMATIC STRESS DISORDER
     Dosage: 60MG PER DAY
     Route: 048
     Dates: start: 20050201
  2. VALIUM [Concomitant]
  3. MINIPRESS [Concomitant]
  4. VICODIN [Concomitant]

REACTIONS (2)
  - PANIC ATTACK [None]
  - TREMOR [None]
